FAERS Safety Report 15013138 (Version 2)
Quarter: 2018Q2

REPORT INFORMATION
  Report Type: Report from Study
  Country: CA (occurrence: CA)
  Receive Date: 20180614
  Receipt Date: 20180618
  Transmission Date: 20180711
  Serious: Yes (Hospitalization)
  Sender: FDA-Public Use
  Company Number: CA-HLSUS-2018-CA-000920

PATIENT
  Age: 71 Year
  Sex: Male

DRUGS (1)
  1. CLOZARIL [Suspect]
     Active Substance: CLOZAPINE
     Dosage: 350 MG QD
     Route: 048
     Dates: start: 20000420

REACTIONS (2)
  - Antipsychotic drug level increased [Unknown]
  - Somnolence [Unknown]

NARRATIVE: CASE EVENT DATE: 20180607
